FAERS Safety Report 5181877-1 (Version None)
Quarter: 2006Q4

REPORT INFORMATION
  Report Type: 
  Country: None (occurrence: None)
  Receive Date: 20061220
  Receipt Date: 20060312
  Transmission Date: 20070319
  Serious: No
  Sender: FDA-Public Use
  Company Number: US-GLAXOSMITHKLINE-A0598355A

PATIENT
  Age: 25 Year
  Sex: Female

DRUGS (2)
  1. COMMIT [Suspect]
     Dates: start: 20060318
  2. ACCUTANE [Concomitant]

REACTIONS (3)
  - APHTHOUS STOMATITIS [None]
  - LIP DRY [None]
  - ORAL PAIN [None]
